FAERS Safety Report 15333738 (Version 1)
Quarter: 2018Q3

REPORT INFORMATION
  Report Type: Spontaneous
  Country: US (occurrence: US)
  Receive Date: 20180830
  Receipt Date: 20180830
  Transmission Date: 20181010
  Serious: Yes (Other)
  Sender: FDA-Public Use
  Company Number: US-SANOFI-AVENTIS-2012SA058547

PATIENT
  Age: 51 Year
  Sex: Female
  Weight: 54 kg

DRUGS (15)
  1. CYCLOPHOSPHAMIDE. [Concomitant]
     Active Substance: CYCLOPHOSPHAMIDE
     Dosage: 990 MG, QCY
     Route: 041
     Dates: start: 20110111, end: 20110111
  2. TAXOTERE [Suspect]
     Active Substance: DOCETAXEL
     Indication: BREAST CANCER
     Dosage: 75 MG/M2, Q3W
     Route: 042
     Dates: start: 20101130, end: 20101130
  3. CYCLOPHOSPHAMIDE. [Concomitant]
     Active Substance: CYCLOPHOSPHAMIDE
     Dosage: 1000 MG,UNK
     Route: 041
     Dates: start: 20110315, end: 20110315
  4. PEGFILGRASTIM [Concomitant]
     Active Substance: PEGFILGRASTIM
     Dosage: 6 MG,UNK
     Dates: start: 20101222
  5. PEGFILGRASTIM [Concomitant]
     Active Substance: PEGFILGRASTIM
     Dosage: 6 MG,UNK
     Dates: start: 20110112
  6. CYCLOPHOSPHAMIDE. [Concomitant]
     Active Substance: CYCLOPHOSPHAMIDE
     Dosage: 960 MG, QCY
     Route: 041
     Dates: start: 20101130, end: 20101130
  7. CYCLOPHOSPHAMIDE. [Concomitant]
     Active Substance: CYCLOPHOSPHAMIDE
     Dosage: 960 MG, QCY
     Route: 041
     Dates: start: 20101221, end: 20101221
  8. TAXOTERE [Suspect]
     Active Substance: DOCETAXEL
     Dosage: 75 MG/M2, Q3W
     Route: 042
     Dates: start: 20110315, end: 20110315
  9. PEGFILGRASTIM [Concomitant]
     Active Substance: PEGFILGRASTIM
     Dosage: 6 MG,UNK
     Dates: start: 20101201
  10. PEGFILGRASTIM [Concomitant]
     Active Substance: PEGFILGRASTIM
     Dosage: 6 MG,UNK
     Dates: start: 20110202
  11. PEGFILGRASTIM [Concomitant]
     Active Substance: PEGFILGRASTIM
     Dosage: 6 MG,UNK
     Dates: start: 20110316
  12. CYCLOPHOSPHAMIDE. [Concomitant]
     Active Substance: CYCLOPHOSPHAMIDE
     Dosage: 990 MG, QCY
     Route: 041
     Dates: start: 20110201, end: 20110201
  13. CYCLOPHOSPHAMIDE. [Concomitant]
     Active Substance: CYCLOPHOSPHAMIDE
     Dosage: 1000 MG,UNK
     Route: 041
     Dates: start: 20110222, end: 20110222
  14. PEGFILGRASTIM [Concomitant]
     Active Substance: PEGFILGRASTIM
     Dosage: 6 MG,UNK
     Dates: start: 20110223
  15. DEXAMETHASONE. [Concomitant]
     Active Substance: DEXAMETHASONE
     Dosage: UNK
     Route: 065

REACTIONS (2)
  - Psychological trauma [Unknown]
  - Alopecia [Recovering/Resolving]

NARRATIVE: CASE EVENT DATE: 201109
